FAERS Safety Report 23573593 (Version 1)
Quarter: 2024Q1

REPORT INFORMATION
  Report Type: Spontaneous
  Country: US (occurrence: US)
  Receive Date: 20240228
  Receipt Date: 20240228
  Transmission Date: 20240410
  Serious: No
  Sender: FDA-Public Use
  Company Number: US-TLX-2024000148

PATIENT
  Sex: Male

DRUGS (1)
  1. ILLUCCIX [Suspect]
     Active Substance: GALLIUM GA-68 GOZETOTIDE
     Indication: Imaging procedure
     Dosage: DUE TO WORD LIMITATION THE DOSAGE INFORMATION IS ADDED TO ^ADDITIONAL INFORMATION ON PRODUCT^.
     Route: 040
     Dates: start: 20240126, end: 20240126

REACTIONS (1)
  - Injection site pain [Recovered/Resolved]

NARRATIVE: CASE EVENT DATE: 20240126
